FAERS Safety Report 24790293 (Version 2)
Quarter: 2025Q3

REPORT INFORMATION
  Report Type: Spontaneous
  Country: EC (occurrence: EC)
  Receive Date: 20241230
  Receipt Date: 20250803
  Transmission Date: 20251020
  Serious: Yes (Other)
  Sender: ALEXION PHARMACEUTICALS
  Company Number: EC-AstraZeneca-CH-00775374A

PATIENT
  Age: 58 Year
  Sex: Female

DRUGS (1)
  1. LYNPARZA [Suspect]
     Active Substance: OLAPARIB
     Indication: Ovarian cancer
     Dosage: 600 MILLIGRAM, QD
     Dates: start: 20240325

REACTIONS (1)
  - Tumour marker increased [Recovered/Resolved]

NARRATIVE: CASE EVENT DATE: 20241227
